FAERS Safety Report 17803471 (Version 1)
Quarter: 2020Q2

REPORT INFORMATION
  Report Type: Spontaneous
  Country: CN (occurrence: CN)
  Receive Date: 20200519
  Receipt Date: 20200519
  Transmission Date: 20200714
  Serious: Yes (Hospitalization, Other)
  Sender: FDA-Public Use
  Company Number: CN-PFIZER INC-2020194462

PATIENT
  Age: 18 Year
  Sex: Female
  Weight: 50 kg

DRUGS (4)
  1. ZYVOX [Suspect]
     Active Substance: LINEZOLID
     Indication: INTRACRANIAL INFECTION
     Dosage: 600.000 MG, 2X/DAY
     Route: 041
     Dates: start: 20200428, end: 20200507
  2. LOXONIN [Concomitant]
     Active Substance: LOXOPROFEN SODIUM
     Indication: PYREXIA
     Dosage: 60.000 MG, 3X/DAY
     Route: 041
     Dates: start: 20200430, end: 20200504
  3. SULPERAZON [Suspect]
     Active Substance: CEFOPERAZONE SODIUM\SULBACTAM SODIUM
     Indication: PNEUMONIA
     Dosage: 3.000 G, 3X/DAY
     Route: 041
     Dates: start: 20200416, end: 20200507
  4. DIPEPTIVEN [Concomitant]
     Active Substance: ALANYL GLUTAMINE
     Indication: NUTRITIONAL SUPPLEMENTATION
     Dosage: 100.000 ML, 1X/DAY
     Route: 041
     Dates: start: 20200422, end: 20200507

REACTIONS (4)
  - Granulocyte count decreased [Recovered/Resolved]
  - White blood cell count decreased [Recovered/Resolved]
  - Off label use [Unknown]
  - Product use issue [Unknown]

NARRATIVE: CASE EVENT DATE: 20200507
